FAERS Safety Report 10412441 (Version 1)
Quarter: 2014Q3

REPORT INFORMATION
  Report Type: Spontaneous
  Country: US (occurrence: None)
  Receive Date: 20140825
  Receipt Date: 20140825
  Transmission Date: 20150326
  Serious: Yes (Disabling)
  Sender: FDA-Public Use
  Company Number: None

PATIENT
  Age: 38 Year
  Sex: Male
  Weight: 108.86 kg

DRUGS (2)
  1. LIDOCAINE JELLY [Suspect]
     Active Substance: LIDOCAINE
     Indication: ORAL CANDIDIASIS
     Dosage: ONE SQUIRT?TWICE DAILY?INTRANASAL
     Route: 045
  2. LIDOCAINE JELLY [Suspect]
     Active Substance: LIDOCAINE
     Indication: RHINITIS
     Dosage: ONE SQUIRT?TWICE DAILY?INTRANASAL
     Route: 045

REACTIONS (2)
  - Product quality issue [None]
  - Drug effect decreased [None]

NARRATIVE: CASE EVENT DATE: 20140824
